FAERS Safety Report 14908396 (Version 5)
Quarter: 2019Q1

REPORT INFORMATION
  Report Type: Spontaneous
  Country: US (occurrence: US)
  Receive Date: 20180517
  Receipt Date: 20190122
  Transmission Date: 20190417
  Serious: No
  Sender: FDA-Public Use
  Company Number: US-PFIZER INC-2018202576

PATIENT
  Age: 57 Year
  Sex: Female
  Weight: 77.55 kg

DRUGS (4)
  1. DOCETAXEL. [Suspect]
     Active Substance: DOCETAXEL
     Indication: BREAST CANCER
     Dosage: UNK, EVERY 3 WEEKS (FOR 6 CYCLES)
     Dates: start: 20120611, end: 20120924
  2. TAXOTERE [Suspect]
     Active Substance: DOCETAXEL
     Dosage: UNK, EVERY 3 WEEKS (FOR 6 CYCLES)
     Dates: start: 20120611, end: 20120924
  3. LISINOPRIL. [Concomitant]
     Active Substance: LISINOPRIL
     Dosage: UNK
     Dates: start: 20120517, end: 20130412
  4. PARAPLATIN [Concomitant]
     Active Substance: CARBOPLATIN
     Dosage: UNK

REACTIONS (7)
  - Hair colour changes [Unknown]
  - Depression [Unknown]
  - Hair disorder [Unknown]
  - Madarosis [Unknown]
  - Alopecia [Recovering/Resolving]
  - Anxiety [Unknown]
  - Hair texture abnormal [Unknown]

NARRATIVE: CASE EVENT DATE: 201303
